FAERS Safety Report 11398076 (Version 1)
Quarter: 2015Q3

REPORT INFORMATION
  Report Type: Spontaneous
  Country: GB (occurrence: GB)
  Receive Date: 20150820
  Receipt Date: 20150820
  Transmission Date: 20151125
  Serious: Yes (Other)
  Sender: FDA-Public Use
  Company Number: GB-AUROBINDO-AUR-APL-2015-06693

PATIENT

DRUGS (5)
  1. OMEGA 3 FISH OIL [Concomitant]
     Active Substance: FISH OIL\OMEGA-3 FATTY ACIDS
     Indication: PRODUCT USED FOR UNKNOWN INDICATION
     Dosage: DAILY ROUTINE
     Route: 048
  2. METRONIDAZOLE. [Concomitant]
     Active Substance: METRONIDAZOLE
     Indication: TOOTH ABSCESS
  3. CLARITHROMYCIN. [Concomitant]
     Active Substance: CLARITHROMYCIN
     Indication: TOOTH ABSCESS
  4. CLARITHROMYCIN 500MG [Suspect]
     Active Substance: CLARITHROMYCIN
     Indication: TOOTH ABSCESS
     Dosage: 500 MG, TWO TIMES A DAY
     Route: 048
     Dates: start: 20150227, end: 20150306
  5. METRONIDAZOLE. [Concomitant]
     Active Substance: METRONIDAZOLE
     Indication: TOOTH ABSCESS
     Dosage: 400 MG, UNK
     Route: 048
     Dates: start: 20150227, end: 20150306

REACTIONS (3)
  - Tongue discolouration [Recovered/Resolved]
  - Tongue disorder [Recovered/Resolved]
  - Dyspepsia [Recovered/Resolved]

NARRATIVE: CASE EVENT DATE: 20150306
